FAERS Safety Report 10446818 (Version 1)
Quarter: 2014Q3

REPORT INFORMATION
  Report Type: Spontaneous
  Country: US (occurrence: US)
  Receive Date: 20140911
  Receipt Date: 20140911
  Transmission Date: 20150326
  Serious: Yes (Death)
  Sender: FDA-Public Use
  Company Number: US-JNJCP-30000239253

PATIENT
  Age: 14 Year
  Sex: Female

DRUGS (2)
  1. JOHNSONS BABY POWDER [Suspect]
     Active Substance: TALC
     Route: 061
  2. UNSPECIFIED SHOWER TO SHOWER POWDER [Suspect]
     Active Substance: BICARBONATE ION\POLYSACCHARIDES\STARCH\TALC
     Indication: PRODUCT USED FOR UNKNOWN INDICATION
     Route: 061

REACTIONS (1)
  - Ovarian cancer stage IV [Fatal]
